FAERS Safety Report 12720043 (Version 1)
Quarter: 2016Q3

REPORT INFORMATION
  Report Type: Spontaneous
  Country: US (occurrence: US)
  Receive Date: 20160907
  Receipt Date: 20160907
  Transmission Date: 20161109
  Serious: No
  Sender: FDA-Public Use
  Company Number: US-ACTAVIS-2016-04900

PATIENT
  Age: 15 Year
  Sex: Female

DRUGS (1)
  1. DOXYCYCLINE (ACTAVIS LABORATORIES FL) [Suspect]
     Active Substance: DOXYCYCLINE
     Dosage: 20 MG, BID
     Route: 048

REACTIONS (8)
  - Swelling [Unknown]
  - Palpitations [Unknown]
  - Dysgeusia [Not Recovered/Not Resolved]
  - Chest pain [Not Recovered/Not Resolved]
  - Dysphagia [Unknown]
  - Throat irritation [Not Recovered/Not Resolved]
  - Vomiting [Unknown]
  - Nausea [Not Recovered/Not Resolved]

NARRATIVE: CASE EVENT DATE: 201602
